FAERS Safety Report 25136070 (Version 1)
Quarter: 2025Q1

REPORT INFORMATION
  Report Type: Spontaneous
  Country: US (occurrence: None)
  Receive Date: 20250328
  Receipt Date: 20250328
  Transmission Date: 20250409
  Serious: No
  Sender: FDA-CTU
  Company Number: None

PATIENT
  Age: 46 Year
  Sex: Female
  Weight: 76.5 kg

DRUGS (1)
  1. HIZENTRA [Suspect]
     Active Substance: HUMAN IMMUNOGLOBULIN G
     Indication: Secondary immunodeficiency
     Route: 058
     Dates: start: 20240819

REACTIONS (5)
  - Burning sensation [None]
  - Pain [None]
  - Infusion related reaction [None]
  - Pruritus [None]
  - Product quality issue [None]

NARRATIVE: CASE EVENT DATE: 20250326
